FAERS Safety Report 23450337 (Version 1)
Quarter: 2024Q1

REPORT INFORMATION
  Report Type: Spontaneous
  Country: GE (occurrence: GE)
  Receive Date: 20240129
  Receipt Date: 20240129
  Transmission Date: 20240410
  Serious: Yes (Hospitalization, Other)
  Sender: FDA-Public Use
  Company Number: GE-STERISCIENCE B.V.-2023-ST-002248

PATIENT
  Age: 79 Year
  Sex: Male

DRUGS (39)
  1. MEROPENEM [Suspect]
     Active Substance: MEROPENEM
     Indication: Urinary tract infection
     Dosage: UNK
     Route: 042
     Dates: start: 2022
  2. PIPERACILLIN SODIUM\TAZOBACTAM SODIUM [Suspect]
     Active Substance: PIPERACILLIN SODIUM\TAZOBACTAM SODIUM
     Indication: Conjunctivitis
     Dosage: UNK
     Route: 042
  3. PIPERACILLIN SODIUM\TAZOBACTAM SODIUM [Suspect]
     Active Substance: PIPERACILLIN SODIUM\TAZOBACTAM SODIUM
     Indication: Pseudomonas infection
  4. PIPERACILLIN SODIUM\TAZOBACTAM SODIUM [Suspect]
     Active Substance: PIPERACILLIN SODIUM\TAZOBACTAM SODIUM
     Indication: Bacterial infection
  5. VANCOMYCIN [Suspect]
     Active Substance: VANCOMYCIN
     Indication: Conjunctivitis
     Dosage: UNK, PER HOUR
     Route: 061
     Dates: start: 2022
  6. VANCOMYCIN [Suspect]
     Active Substance: VANCOMYCIN
     Indication: Conjunctivitis
     Dosage: EVERY TWO HOURS
     Route: 061
     Dates: start: 2022
  7. VANCOMYCIN [Suspect]
     Active Substance: VANCOMYCIN
     Indication: Pseudomonas infection
  8. VANCOMYCIN [Suspect]
     Active Substance: VANCOMYCIN
     Indication: Bacterial infection
  9. TOBRAMYCIN [Suspect]
     Active Substance: TOBRAMYCIN
     Indication: Conjunctivitis
     Dosage: UNK, EVERY TWO HOURS
     Route: 065
  10. TOBRAMYCIN [Suspect]
     Active Substance: TOBRAMYCIN
     Indication: Pseudomonas infection
  11. TOBRAMYCIN [Suspect]
     Active Substance: TOBRAMYCIN
     Indication: Bacterial infection
  12. POLYMYXIN B SULFATE AND TRIMETHOPRIM [Suspect]
     Active Substance: POLYMYXIN B SULFATE\TRIMETHOPRIM SULFATE
     Indication: Conjunctivitis
     Dosage: FOUR TIMES A DAY
     Route: 061
  13. POLYMYXIN B SULFATE AND TRIMETHOPRIM [Suspect]
     Active Substance: POLYMYXIN B SULFATE\TRIMETHOPRIM SULFATE
     Indication: Pseudomonas infection
  14. POLYMYXIN B SULFATE AND TRIMETHOPRIM [Suspect]
     Active Substance: POLYMYXIN B SULFATE\TRIMETHOPRIM SULFATE
     Indication: Bacterial infection
  15. PREDNISOLONE [Suspect]
     Active Substance: PREDNISOLONE
     Indication: Conjunctivitis
     Dosage: FOUR TIMES A DAY
     Route: 065
  16. PREDNISOLONE [Suspect]
     Active Substance: PREDNISOLONE
     Indication: Pseudomonas infection
  17. PREDNISOLONE [Suspect]
     Active Substance: PREDNISOLONE
     Indication: Bacterial infection
  18. TOBRAMYCIN AND DEXAMETHASONE [Suspect]
     Active Substance: DEXAMETHASONE\TOBRAMYCIN
     Indication: Conjunctivitis
     Dosage: TO BE APPLIED AT NIGHT ONLY
     Route: 061
  19. TOBRAMYCIN AND DEXAMETHASONE [Suspect]
     Active Substance: DEXAMETHASONE\TOBRAMYCIN
     Indication: Pseudomonas infection
  20. TOBRAMYCIN AND DEXAMETHASONE [Suspect]
     Active Substance: DEXAMETHASONE\TOBRAMYCIN
     Indication: Bacterial infection
  21. TOBRAMYCIN AND DEXAMETHASONE [Suspect]
     Active Substance: DEXAMETHASONE\TOBRAMYCIN
     Indication: Conjunctivitis
  22. MOXIFLOXACIN [Suspect]
     Active Substance: MOXIFLOXACIN
     Indication: Conjunctivitis
     Dosage: DOSE: 4 TIMES DAILY
     Route: 061
     Dates: start: 2022
  23. BACITRACIN AND POLYMYXIN B SULFATE [Suspect]
     Active Substance: BACITRACIN\POLYMYXIN B SULFATE
     Indication: Conjunctivitis
     Dosage: DOSE: 4 TIMES DAILY
     Route: 061
     Dates: start: 2022
  24. HYPOCHLOROUS ACID [Suspect]
     Active Substance: HYPOCHLOROUS ACID
     Indication: Conjunctivitis
     Dosage: DOSE: FOUR TIMES DAILY
     Route: 065
     Dates: start: 2022
  25. CEFTAZIDIME [Suspect]
     Active Substance: CEFTAZIDIME
     Indication: Conjunctivitis
     Dosage: UNK, PER HOUR
     Route: 061
     Dates: start: 2022
  26. AMOXICILLIN\CLAVULANIC ACID [Suspect]
     Active Substance: AMOXICILLIN\CLAVULANIC ACID
     Indication: Conjunctivitis
     Dosage: UNK
     Route: 048
  27. SALINE [Suspect]
     Active Substance: SODIUM CHLORIDE
     Indication: Conjunctivitis
     Dosage: UNK
     Dates: start: 2022
  28. DOXYCYCLINE [Suspect]
     Active Substance: DOXYCYCLINE
     Indication: Conjunctivitis
     Dosage: 100 MILLIGRAM, BID
     Route: 048
  29. DOXYCYCLINE [Suspect]
     Active Substance: DOXYCYCLINE
     Indication: Pseudomonas infection
  30. DOXYCYCLINE [Suspect]
     Active Substance: DOXYCYCLINE
     Indication: Bacterial infection
  31. VITAMIN C [Suspect]
     Active Substance: ASCORBIC ACID
     Indication: Conjunctivitis
     Dosage: 2 GRAM, QD
     Route: 065
  32. VITAMIN C [Suspect]
     Active Substance: ASCORBIC ACID
     Indication: Pseudomonas infection
  33. VITAMIN C [Suspect]
     Active Substance: ASCORBIC ACID
     Indication: Bacterial infection
  34. CYCLOSPORINE [Suspect]
     Active Substance: CYCLOSPORINE
     Indication: Conjunctivitis
     Dosage: UNK
     Route: 061
  35. CYCLOSPORINE [Suspect]
     Active Substance: CYCLOSPORINE
     Indication: Pseudomonas infection
  36. CYCLOSPORINE [Suspect]
     Active Substance: CYCLOSPORINE
     Indication: Bacterial infection
  37. POVIDONE-IODINE [Suspect]
     Active Substance: POVIDONE-IODINE
     Indication: Conjunctivitis
     Dosage: FLUSHES
     Route: 065
  38. POVIDONE-IODINE [Suspect]
     Active Substance: POVIDONE-IODINE
     Indication: Pseudomonas infection
  39. POVIDONE-IODINE [Suspect]
     Active Substance: POVIDONE-IODINE
     Indication: Bacterial infection

REACTIONS (4)
  - Conjunctivitis [None]
  - Bacterial infection [None]
  - Pseudomonas infection [None]
  - Treatment failure [Unknown]
